FAERS Safety Report 5854215-6 (Version None)
Quarter: 2008Q3

REPORT INFORMATION
  Report Type: 
  Country: None (occurrence: None)
  Receive Date: 20080822
  Receipt Date: 20080814
  Transmission Date: 20090109
  Serious: Yes (Other)
  Sender: FDA-Public Use
  Company Number: PHHY2008BR18172

PATIENT
  Age: 78 Year
  Sex: Female

DRUGS (2)
  1. EXELON [Suspect]
     Indication: MEMORY IMPAIRMENT
     Dosage: 9MG/5CM^2
     Route: 062
     Dates: start: 20080601
  2. EXELON [Suspect]
     Dosage: 18MG/10CM^2
     Route: 062

REACTIONS (9)
  - APPLICATION SITE IRRITATION [None]
  - BLISTER [None]
  - ECZEMA [None]
  - ERYTHEMA [None]
  - HYPERSENSITIVITY [None]
  - NAUSEA [None]
  - PHARYNGEAL OEDEMA [None]
  - PRURITUS [None]
  - SKIN PLAQUE [None]
